FAERS Safety Report 8252640-X (Version None)
Quarter: 2012Q2

REPORT INFORMATION
  Report Type: 
  Country: None (occurrence: None)
  Receive Date: 20120402
  Receipt Date: 20111118
  Transmission Date: 20120825
  Serious: No
  Sender: FDA-Public Use
  Company Number: US-ABBOTT-11P-163-0876133-00

PATIENT
  Age: 80 Year
  Sex: Male
  Weight: 68.1 kg

DRUGS (5)
  1. ANDROGEL [Suspect]
     Indication: BLOOD TESTOSTERONE DECREASED
     Dosage: APPLIES TO SHOULDERS
     Dates: start: 20111001, end: 20111101
  2. ANDROGEL [Suspect]
     Dosage: HALF PACKET PER DAY
     Dates: start: 20111101
  3. METOPROLOL TARTRATE [Concomitant]
     Indication: HYPERTENSION
  4. SIMVASTATIN [Concomitant]
     Indication: BLOOD CHOLESTEROL
  5. ASPIRIN [Concomitant]
     Indication: PRODUCT USED FOR UNKNOWN INDICATION

REACTIONS (2)
  - DIZZINESS [None]
  - BALANCE DISORDER [None]
